FAERS Safety Report 21572455 (Version 1)
Quarter: 2022Q4

REPORT INFORMATION
  Report Type: Report from Study
  Country: CO (occurrence: CO)
  Receive Date: 20221109
  Receipt Date: 20221109
  Transmission Date: 20230113
  Serious: Yes (Other)
  Sender: FDA-Public Use
  Company Number: CO-BRISTOL-MYERS SQUIBB COMPANY-2022-134662

PATIENT
  Age: 45 Year
  Sex: Female

DRUGS (2)
  1. ELIQUIS [Suspect]
     Active Substance: APIXABAN
     Indication: Product used for unknown indication
     Route: 048
  2. TOZINAMERAN [Suspect]
     Active Substance: TOZINAMERAN
     Indication: COVID-19 immunisation
     Dosage: SINGLE, SECOND DOSE
     Route: 065
     Dates: start: 202105, end: 202105

REACTIONS (4)
  - Gait disturbance [Unknown]
  - Thrombosis [Unknown]
  - Hypoaesthesia [Unknown]
  - Skin discolouration [Unknown]

NARRATIVE: CASE EVENT DATE: 20210501
